FAERS Safety Report 15523968 (Version 2)
Quarter: 2018Q4

REPORT INFORMATION
  Report Type: Spontaneous
  Country: FR (occurrence: FR)
  Receive Date: 20181018
  Receipt Date: 20181108
  Transmission Date: 20190205
  Serious: Yes (Hospitalization, Other)
  Sender: FDA-Public Use
  Company Number: FR-APOTEX-2018AP022621

PATIENT

DRUGS (2)
  1. TRAMADOL. [Interacting]
     Active Substance: TRAMADOL
     Indication: PRODUCT USED FOR UNKNOWN INDICATION
     Dosage: 2 DF, QD
     Route: 065
  2. PAROXETINE BIOGARAN FILM-COATED TABLET [Suspect]
     Active Substance: PAROXETINE HYDROCHLORIDE
     Indication: DEPRESSION
     Dosage: 20 MG, QD
     Route: 048
     Dates: start: 2006

REACTIONS (7)
  - Angioedema [Unknown]
  - Dyspnoea [Recovering/Resolving]
  - Labelled drug-drug interaction medication error [Unknown]
  - Rash macular [Unknown]
  - Swollen tongue [Unknown]
  - Hot flush [Unknown]
  - Paralysis [Unknown]

NARRATIVE: CASE EVENT DATE: 20180930
